FAERS Safety Report 9827270 (Version 1)
Quarter: 2014Q1

REPORT INFORMATION
  Report Type: Spontaneous
  Country: CA (occurrence: CA)
  Receive Date: 20140117
  Receipt Date: 20140117
  Transmission Date: 20141002
  Serious: Yes (Hospitalization, Other)
  Sender: FDA-Public Use
  Company Number: CA-PFIZER INC-2014011458

PATIENT
  Age: 62 Year
  Sex: Female

DRUGS (1)
  1. SUTENT [Suspect]
     Indication: PANCREATIC NEUROENDOCRINE TUMOUR METASTATIC
     Dosage: 37.5 MG CONTINUOUS DAILY DOSING
     Dates: start: 20131220

REACTIONS (3)
  - Cerebral haemorrhage [Recovering/Resolving]
  - Blood pressure increased [Unknown]
  - Aneurysm [Recovering/Resolving]
